FAERS Safety Report 7864191-2 (Version None)
Quarter: 2011Q4

REPORT INFORMATION
  Report Type: 
  Country: None (occurrence: None)
  Receive Date: 20111028
  Receipt Date: 20111021
  Transmission Date: 20120403
  Serious: Yes (Other)
  Sender: FDA-Public Use
  Company Number: BR-PFIZER INC-2011256432

PATIENT
  Age: 38 Year
  Sex: Female

DRUGS (2)
  1. GLIPIZIDE [Suspect]
     Indication: TYPE 2 DIABETES MELLITUS
     Dosage: UNK
     Dates: start: 19880101, end: 20050101
  2. METFORMIN HCL [Suspect]
     Indication: TYPE 2 DIABETES MELLITUS
     Dosage: UNK
     Dates: start: 19880101

REACTIONS (4)
  - DIABETIC RETINOPATHY [None]
  - CEREBROVASCULAR ACCIDENT [None]
  - MICROALBUMINURIA [None]
  - HYPOGLYCAEMIA [None]
